FAERS Safety Report 7961111-7 (Version None)
Quarter: 2011Q4

REPORT INFORMATION
  Report Type: 
  Country: None (occurrence: None)
  Receive Date: 20111207
  Receipt Date: 20111128
  Transmission Date: 20120403
  Serious: Yes (Hospitalization)
  Sender: FDA-Public Use
  Company Number: US-US-EMD SERONO, INC.-230665K05USA

PATIENT
  Sex: Female
  Weight: 80 kg

DRUGS (8)
  1. BACLOFEN [Concomitant]
     Indication: MULTIPLE SCLEROSIS
  2. DIGOXIN [Concomitant]
     Indication: ATRIAL FIBRILLATION
  3. CARDIZEM [Concomitant]
     Indication: ATRIAL FIBRILLATION
  4. LIPITOR [Concomitant]
     Indication: BLOOD CHOLESTEROL INCREASED
  5. RECLAST [Concomitant]
     Indication: OSTEOPOROSIS
  6. ALDACTONE [Concomitant]
     Indication: FLUID RETENTION
  7. REBIF [Suspect]
     Indication: MULTIPLE SCLEROSIS
     Route: 058
     Dates: start: 20020322
  8. LASIX [Concomitant]
     Indication: FLUID RETENTION

REACTIONS (12)
  - SEPSIS [None]
  - ERYTHEMA [None]
  - BLOOD SODIUM INCREASED [None]
  - DIVERTICULITIS [None]
  - THROMBOSIS [None]
  - POSTOPERATIVE WOUND COMPLICATION [None]
  - BLOOD SODIUM DECREASED [None]
  - NAIL DISCOLOURATION [None]
  - HEPATIC ENZYME INCREASED [None]
  - FALL [None]
  - ARTHRITIS [None]
  - PULMONARY EMBOLISM [None]
